FAERS Safety Report 23305929 (Version 1)
Quarter: 2023Q4

REPORT INFORMATION
  Report Type: Spontaneous
  Country: US (occurrence: US)
  Receive Date: 20231218
  Receipt Date: 20231218
  Transmission Date: 20240110
  Serious: No
  Sender: FDA-Public Use
  Company Number: US-HALEON-USCH2023062517

PATIENT

DRUGS (4)
  1. FLONASE NIGHTTIME ALLERGY RELIEF [Suspect]
     Active Substance: TRIPROLIDINE HYDROCHLORIDE
     Indication: Eye pruritus
     Dosage: UNK
  2. FLONASE NIGHTTIME ALLERGY RELIEF [Suspect]
     Active Substance: TRIPROLIDINE HYDROCHLORIDE
     Indication: Multiple allergies
  3. FLONASE NIGHTTIME ALLERGY RELIEF [Suspect]
     Active Substance: TRIPROLIDINE HYDROCHLORIDE
     Indication: Rhinorrhoea
  4. FLONASE NIGHTTIME ALLERGY RELIEF [Suspect]
     Active Substance: TRIPROLIDINE HYDROCHLORIDE
     Indication: Nasopharyngitis

REACTIONS (2)
  - Drug effective for unapproved indication [Unknown]
  - Product use in unapproved indication [Unknown]
